FAERS Safety Report 20663386 (Version 2)
Quarter: 2022Q2

REPORT INFORMATION
  Report Type: Spontaneous
  Country: JP (occurrence: JP)
  Receive Date: 20220401
  Receipt Date: 20220419
  Transmission Date: 20220721
  Serious: No
  Sender: FDA-Public Use
  Company Number: JP-GSKNCCC-Case-01456412_AE-56410

PATIENT
  Age: 62 Year
  Sex: Male

DRUGS (12)
  1. SOTROVIMAB [Suspect]
     Active Substance: SOTROVIMAB
     Indication: COVID-19
     Dosage: 500 MG/50 ML
     Route: 041
     Dates: start: 20220326
  2. AKINETON TABLET (BIPERIDEN HYDROCHLORIDE) [Concomitant]
     Dosage: 1 MG, 1 TABLET, BID IN MORNING AND EVENING
  3. AMOBAN TABLETS [Concomitant]
     Dosage: 7.5 MG, QD, 1 TABLET AT BEDTIME
  4. ABILIFY [Concomitant]
     Active Substance: ARIPIPRAZOLE
     Dosage: 18 MG, QD, 3 TABLETS/DOSE, AFTER BREAKFAST
  5. GASMOTIN TABLET [Concomitant]
     Dosage: 5 MG, TID, 3 TABLETS DIVIDED INTO 3 DOSES, AFTER EACH MEAL
  6. VALPROATE SODIUM [Concomitant]
     Active Substance: VALPROATE SODIUM
     Dosage: 400 MG, TID, 6 TABLETS DIVIDED INTO 3 DOSES, AFTER MEAL
  7. FLUNITRAZEPAM [Concomitant]
     Active Substance: FLUNITRAZEPAM
     Dosage: 2 MG, QD, 1 TABLET AT BEDTIME
  8. BLONANSERIN [Concomitant]
     Active Substance: BLONANSERIN
     Dosage: 12 MG, BID, 3 TABLETS DIVIDED INTO 2 DOSES, IN MORNING AND EVENING
  9. DIAZEPAM [Concomitant]
     Active Substance: DIAZEPAM
     Dosage: 1 MG, TID, 3 TABLETS DIVIDED INTO 3 DOSES, AFTER EACH MEAL
  10. YODEL-S SUGAR COATED TABLET [Concomitant]
     Dosage: 2 DF, QD, 2 TABLETS/DOSE, AT BEDTIME
  11. LEVOMEPROMAZINE [Concomitant]
     Active Substance: LEVOMEPROMAZINE
     Dosage: 50 MG, QD, 1 TABLET AT BEDTIME
  12. MAGNESIUM OXIDE [Concomitant]
     Active Substance: MAGNESIUM OXIDE
     Dosage: 500 MG, QID, 4 TABLETS DIVIDED INTO 4 DOSES, AFTER EACH MEAL AND AT BEDTIME

REACTIONS (1)
  - Infusion site extravasation [Recovered/Resolved]

NARRATIVE: CASE EVENT DATE: 20220326
